FAERS Safety Report 24046671 (Version 1)
Quarter: 2024Q3

REPORT INFORMATION
  Report Type: Spontaneous
  Country: CN (occurrence: CN)
  Receive Date: 20240703
  Receipt Date: 20240703
  Transmission Date: 20241017
  Serious: Yes (Life-Threatening, Disabling)
  Sender: PAREXEL
  Company Number: CN-SHANGHAI JUNSHI BIOSCIENCES CO., LTD.-CN2024010458

PATIENT

DRUGS (2)
  1. TORIPALIMAB [Suspect]
     Active Substance: TORIPALIMAB
     Indication: Renal cancer stage IV
     Dosage: 240 MG, Q3W
     Route: 041
     Dates: start: 20230928, end: 20240430
  2. PAZOPANIB [Suspect]
     Active Substance: PAZOPANIB
     Indication: Renal cancer stage IV
     Dosage: 0.8 G, QD
     Route: 048
     Dates: start: 20240320

REACTIONS (4)
  - Rash [Recovering/Resolving]
  - Liver injury [Recovering/Resolving]
  - Pneumonitis [Recovering/Resolving]
  - Myocardial necrosis marker increased [Recovering/Resolving]

NARRATIVE: CASE EVENT DATE: 20240501
